FAERS Safety Report 25582019 (Version 1)
Quarter: 2025Q3

REPORT INFORMATION
  Report Type: Report from Study
  Country: US (occurrence: US)
  Receive Date: 20250719
  Receipt Date: 20250719
  Transmission Date: 20251021
  Serious: Yes (Hospitalization, Other)
  Sender: UNITED THERAPEUTICS
  Company Number: US-UNITED THERAPEUTICS-UNT-2025-023973

PATIENT
  Age: 3 Year
  Sex: Female
  Weight: 17.1 kg

DRUGS (26)
  1. UNITUXIN [Suspect]
     Active Substance: DINUTUXIMAB
     Indication: Neuroblastoma
     Route: 041
  2. UNITUXIN [Suspect]
     Active Substance: DINUTUXIMAB
     Route: 041
  3. UNITUXIN [Suspect]
     Active Substance: DINUTUXIMAB
     Route: 041
  4. CISPLATIN [Suspect]
     Active Substance: CISPLATIN
     Indication: Neuroblastoma
  5. CISPLATIN [Suspect]
     Active Substance: CISPLATIN
  6. CISPLATIN [Suspect]
     Active Substance: CISPLATIN
  7. CYCLOPHOSPHAMIDE [Suspect]
     Active Substance: CYCLOPHOSPHAMIDE
     Indication: Neuroblastoma
  8. CYCLOPHOSPHAMIDE [Suspect]
     Active Substance: CYCLOPHOSPHAMIDE
  9. CYCLOPHOSPHAMIDE [Suspect]
     Active Substance: CYCLOPHOSPHAMIDE
  10. ETOPOSIDE [Suspect]
     Active Substance: ETOPOSIDE
     Indication: Neuroblastoma
  11. ETOPOSIDE [Suspect]
     Active Substance: ETOPOSIDE
  12. ETOPOSIDE [Suspect]
     Active Substance: ETOPOSIDE
  13. FILGRASTIM [Suspect]
     Active Substance: FILGRASTIM
     Indication: Neuroblastoma
  14. FILGRASTIM [Suspect]
     Active Substance: FILGRASTIM
  15. FILGRASTIM [Suspect]
     Active Substance: FILGRASTIM
  16. NEULASTA [Suspect]
     Active Substance: PEGFILGRASTIM
     Indication: Neuroblastoma
  17. NEULASTA [Suspect]
     Active Substance: PEGFILGRASTIM
  18. NEULASTA [Suspect]
     Active Substance: PEGFILGRASTIM
  19. LEUKINE [Suspect]
     Active Substance: SARGRAMOSTIM
     Indication: Neuroblastoma
  20. LEUKINE [Suspect]
     Active Substance: SARGRAMOSTIM
  21. LEUKINE [Suspect]
     Active Substance: SARGRAMOSTIM
  22. TOPOTECAN [Suspect]
     Active Substance: TOPOTECAN HYDROCHLORIDE
     Indication: Neuroblastoma
  23. TOPOTECAN [Suspect]
     Active Substance: TOPOTECAN HYDROCHLORIDE
  24. TOPOTECAN [Suspect]
     Active Substance: TOPOTECAN HYDROCHLORIDE
  25. VINCRISTINE SULFATE [Concomitant]
     Active Substance: VINCRISTINE SULFATE
     Indication: Neuroblastoma
  26. DOXORUBICIN HYDROCHLORIDE [Concomitant]
     Active Substance: DOXORUBICIN HYDROCHLORIDE
     Indication: Neuroblastoma

REACTIONS (3)
  - Dehydration [Recovered/Resolved]
  - Hypokalaemia [Recovered/Resolved]
  - Proteinuria [Recovered/Resolved]

NARRATIVE: CASE EVENT DATE: 20250527
